FAERS Safety Report 12714097 (Version 3)
Quarter: 2016Q4

REPORT INFORMATION
  Report Type: Spontaneous
  Country: US (occurrence: US)
  Receive Date: 20160905
  Receipt Date: 20161111
  Transmission Date: 20170207
  Serious: Yes (Other)
  Sender: FDA-Public Use
  Company Number: US-PFIZER INC-2016403155

PATIENT
  Age: 70 Year
  Sex: Female

DRUGS (5)
  1. IBRANCE [Suspect]
     Active Substance: PALBOCICLIB
     Dosage: 75 MG, CYCLIC, (DAILY X 21 DAYS)
     Dates: start: 20160808, end: 20160828
  2. IBRANCE [Suspect]
     Active Substance: PALBOCICLIB
     Indication: BREAST CANCER METASTATIC
     Dosage: 125 MG, CYCLIC, (DAILY X 21 DAYS)
     Dates: start: 20160606, end: 20160626
  3. IBRANCE [Suspect]
     Active Substance: PALBOCICLIB
     Dosage: 75 MG, CYCLIC, (DAILY X 21 DAYS )
     Dates: start: 20160912, end: 20160917
  4. XGEVA [Concomitant]
     Active Substance: DENOSUMAB
     Dosage: MONTHLY
     Dates: start: 20151209
  5. FASLODEX [Concomitant]
     Active Substance: FULVESTRANT
     Dosage: MONTHLY
     Dates: start: 20160606

REACTIONS (3)
  - Full blood count decreased [Not Recovered/Not Resolved]
  - Neutropenia [Unknown]
  - Neoplasm progression [Unknown]

NARRATIVE: CASE EVENT DATE: 20160606
